FAERS Safety Report 5759675-7 (Version None)
Quarter: 2008Q2

REPORT INFORMATION
  Report Type: 
  Country: None (occurrence: None)
  Receive Date: 20080605
  Receipt Date: 20080528
  Transmission Date: 20081010
  Serious: Yes (Other)
  Sender: FDA-Public Use
  Company Number: A0610773A

PATIENT
  Age: 34 Year
  Sex: Female

DRUGS (4)
  1. PAXIL [Suspect]
     Dosage: 10MG PER DAY
     Route: 048
     Dates: start: 20000101
  2. PAXIL [Suspect]
     Dosage: 20MG PER DAY
     Route: 048
     Dates: start: 20000101
  3. PAXIL [Suspect]
     Route: 048
  4. LORAZEPAM [Concomitant]

REACTIONS (29)
  - ABDOMINAL PAIN UPPER [None]
  - AGGRESSION [None]
  - AGITATION [None]
  - ANGER [None]
  - CEREBROVASCULAR ACCIDENT [None]
  - CONVULSION [None]
  - DEPRESSED MOOD [None]
  - DISORIENTATION [None]
  - DIZZINESS [None]
  - DRUG EXPOSURE VIA BREAST MILK [None]
  - EYE PAIN [None]
  - FEELING ABNORMAL [None]
  - GENERAL PHYSICAL HEALTH DETERIORATION [None]
  - HEADACHE [None]
  - HOSTILITY [None]
  - HYPOAESTHESIA FACIAL [None]
  - HYPOAESTHESIA ORAL [None]
  - IMMOBILE [None]
  - IRRITABILITY [None]
  - LOSS OF LIBIDO [None]
  - MIGRAINE [None]
  - NORMAL NEWBORN [None]
  - PARAESTHESIA [None]
  - PREGNANCY [None]
  - SOMNOLENCE [None]
  - SUICIDAL IDEATION [None]
  - TINNITUS [None]
  - WEIGHT INCREASED [None]
  - WITHDRAWAL SYNDROME [None]
